FAERS Safety Report 4428688-X (Version None)
Quarter: 2004Q3

REPORT INFORMATION
  Report Type: 
  Country: None (occurrence: None)
  Receive Date: 20040818
  Receipt Date: 20031118
  Transmission Date: 20050211
  Serious: Yes (Life-Threatening)
  Sender: FDA-Public Use
  Company Number: US-BRISTOL-MYERS SQUIBB COMPANY-12440020

PATIENT
  Age: 85 Year
  Sex: Female
  Weight: 39 kg

DRUGS (4)
  1. TEQUIN [Suspect]
     Indication: PNEUMONIA
     Route: 042
     Dates: start: 20010712, end: 20010712
  2. PERMAX [Concomitant]
  3. SINEMET [Concomitant]
     Dosage: 25/100 TABLET
  4. PAXIL [Concomitant]

REACTIONS (1)
  - TORSADE DE POINTES [None]
